FAERS Safety Report 5611263-9 (Version None)
Quarter: 2008Q1

REPORT INFORMATION
  Report Type: 
  Country: None (occurrence: None)
  Receive Date: 20080201
  Receipt Date: 20080124
  Transmission Date: 20080703
  Serious: Yes (Other)
  Sender: FDA-Public Use
  Company Number: US-ASTRAZENECA-2008UW01771

PATIENT
  Age: 79 Year
  Sex: Female
  Weight: 77.1 kg

DRUGS (10)
  1. NEXIUM [Suspect]
     Indication: DYSPEPSIA
     Route: 048
     Dates: start: 20080122
  2. NEXIUM [Suspect]
     Indication: OESOPHAGITIS
     Route: 048
     Dates: start: 20080122
  3. NEXIUM [Suspect]
     Indication: NAUSEA
     Route: 048
     Dates: start: 20080122
  4. ALTACE [Concomitant]
  5. CADUET [Concomitant]
  6. KORID [Concomitant]
  7. DYAZIDE [Concomitant]
  8. COZAAR [Concomitant]
  9. WARFARIN SODIUM [Concomitant]
  10. AMBIEN [Concomitant]

REACTIONS (4)
  - CEREBROVASCULAR ACCIDENT [None]
  - DEPRESSION [None]
  - DRUG INEFFECTIVE [None]
  - DYSPEPSIA [None]
